FAERS Safety Report 7362226-7 (Version None)
Quarter: 2011Q1

REPORT INFORMATION
  Report Type: 
  Country: None (occurrence: None)
  Receive Date: 20110318
  Receipt Date: 20110307
  Transmission Date: 20110831
  Serious: Yes (Other)
  Sender: FDA-Public Use
  Company Number: PHHY2011US19019

PATIENT
  Age: 88 Year
  Sex: Female

DRUGS (7)
  1. RECLAST [Suspect]
     Dosage: 5 MG
     Route: 042
     Dates: start: 20101007
  2. LOSARTAN POTASSIUM [Concomitant]
  3. ASPIRIN [Concomitant]
  4. CEFUROXIME [Concomitant]
  5. HUMIRA [Suspect]
     Indication: RHEUMATOID ARTHRITIS
     Dosage: 40 MG
     Dates: end: 20101101
  6. CARVEDILOL [Concomitant]
  7. ERGOCALCIFEROL [Concomitant]

REACTIONS (6)
  - BLOOD CALCIUM INCREASED [None]
  - OEDEMA PERIPHERAL [None]
  - BRONCHITIS [None]
  - MALAISE [None]
  - NASOPHARYNGITIS [None]
  - PNEUMONIA [None]
